FAERS Safety Report 5522885-8 (Version None)
Quarter: 2007Q4

REPORT INFORMATION
  Report Type: 
  Country: None (occurrence: None)
  Receive Date: 20071116
  Receipt Date: 20071106
  Transmission Date: 20080405
  Serious: Yes (Other)
  Sender: FDA-Public Use
  Company Number: 235477K07USA

PATIENT
  Age: 32 Year
  Sex: Female
  Weight: 101.1521 kg

DRUGS (8)
  1. REBIF [Suspect]
     Indication: MULTIPLE SCLEROSIS
     Dosage: SEE IMAGE
     Route: 058
     Dates: start: 20061106, end: 20070701
  2. REBIF [Suspect]
     Indication: MULTIPLE SCLEROSIS
     Dosage: SEE IMAGE
     Route: 058
     Dates: start: 20071002
  3. COPAXONE [Suspect]
     Dates: start: 20070704, end: 20070801
  4. TOPAMAX [Concomitant]
  5. ZANAFLEX [Concomitant]
  6. ADVIL [Concomitant]
  7. VICODIN [Concomitant]
  8. NEURONTIN [Concomitant]

REACTIONS (2)
  - ABORTION SPONTANEOUS [None]
  - DRUG EXPOSURE DURING PREGNANCY [None]
